FAERS Safety Report 16325524 (Version 2)
Quarter: 2019Q2

REPORT INFORMATION
  Report Type: Report from Study
  Country: US (occurrence: US)
  Receive Date: 20190517
  Receipt Date: 20190613
  Transmission Date: 20190711
  Serious: Yes (Hospitalization)
  Sender: FDA-Public Use
  Company Number: US-GILEAD-2019-0408421

PATIENT
  Age: 71 Year
  Sex: Female

DRUGS (6)
  1. MULTAQ [Concomitant]
     Active Substance: DRONEDARONE
  2. AMBRISENTAN [Suspect]
     Active Substance: AMBRISENTAN
     Indication: PULMONARY ARTERIAL HYPERTENSION
     Dosage: 5 MG, QD
     Route: 065
     Dates: start: 20190313
  3. ATORVASTATIN [Concomitant]
     Active Substance: ATORVASTATIN
  4. RAMIPRIL. [Concomitant]
     Active Substance: RAMIPRIL
  5. ISOSORBIDE. [Concomitant]
     Active Substance: ISOSORBIDE
  6. METOPROLOL [METOPROLOL FUMARATE] [Concomitant]

REACTIONS (2)
  - Constipation [Not Recovered/Not Resolved]
  - Dyspnoea [Recovered/Resolved]

NARRATIVE: CASE EVENT DATE: 20190410
